FAERS Safety Report 8166406-2 (Version None)
Quarter: 2012Q1

REPORT INFORMATION
  Report Type: 
  Country: None (occurrence: None)
  Receive Date: 20120227
  Receipt Date: 20110713
  Transmission Date: 20120608
  Serious: No
  Sender: FDA-Public Use
  Company Number: US-MYLANLABS-2011S1014835

PATIENT
  Age: 17 Year
  Sex: Female

DRUGS (2)
  1. AMNESTEEM [Suspect]
  2. AMNESTEEM [Suspect]

REACTIONS (5)
  - ARTHRALGIA [None]
  - HALLUCINATION, VISUAL [None]
  - CRYING [None]
  - MYALGIA [None]
  - FATIGUE [None]
